FAERS Safety Report 26159138 (Version 1)
Quarter: 2025Q4

REPORT INFORMATION
  Report Type: Report from Study
  Country: US (occurrence: US)
  Receive Date: 20251216
  Receipt Date: 20251216
  Transmission Date: 20260118
  Serious: Yes (Other)
  Sender: ABBVIE
  Company Number: US-ABBVIE-6589316

PATIENT
  Sex: Female

DRUGS (1)
  1. HUMIRA [Suspect]
     Active Substance: ADALIMUMAB
     Indication: Product used for unknown indication
     Route: 058
     Dates: start: 20210210

REACTIONS (5)
  - Intervertebral disc protrusion [Recovered/Resolved with Sequelae]
  - Atrial fibrillation [Unknown]
  - Arthritis [Not Recovered/Not Resolved]
  - Knee arthroplasty [Recovered/Resolved with Sequelae]
  - Fatigue [Unknown]
